FAERS Safety Report 16970166 (Version 3)
Quarter: 2020Q1

REPORT INFORMATION
  Report Type: Spontaneous
  Country: FR (occurrence: FR)
  Receive Date: 20191029
  Receipt Date: 20200305
  Transmission Date: 20200409
  Serious: Yes (Other)
  Sender: FDA-Public Use
  Company Number: NVSC2019FR016962

PATIENT
  Age: 12 Year
  Sex: Male
  Weight: 45 kg

DRUGS (23)
  1. RITALIN [Suspect]
     Active Substance: METHYLPHENIDATE HYDROCHLORIDE
     Indication: ATTENTION DEFICIT/HYPERACTIVITY DISORDER
     Dosage: 0.5 DF, QD (HALF TABLET OF 10 MG IN MORNING)
     Route: 065
     Dates: start: 201501
  2. RITALIN [Suspect]
     Active Substance: METHYLPHENIDATE HYDROCHLORIDE
     Dosage: 10 MG, BID
     Route: 065
     Dates: start: 20160622
  3. RITALIN [Suspect]
     Active Substance: METHYLPHENIDATE HYDROCHLORIDE
     Dosage: 10 MG, BID
     Route: 065
     Dates: start: 20161109
  4. RITALIN [Suspect]
     Active Substance: METHYLPHENIDATE HYDROCHLORIDE
     Dosage: 10 MG, BID
     Route: 065
     Dates: start: 20160713
  5. MELATONIN [Concomitant]
     Active Substance: MELATONIN
     Indication: PRODUCT USED FOR UNKNOWN INDICATION
     Dosage: 1 G, QD
     Route: 065
     Dates: start: 20160502
  6. RITALIN [Suspect]
     Active Substance: METHYLPHENIDATE HYDROCHLORIDE
     Dosage: 10 MG, BID
     Route: 065
     Dates: start: 20160502
  7. RITALIN [Suspect]
     Active Substance: METHYLPHENIDATE HYDROCHLORIDE
     Dosage: 10 MG, BID
     Route: 065
     Dates: start: 20161212, end: 201701
  8. RITALIN [Suspect]
     Active Substance: METHYLPHENIDATE HYDROCHLORIDE
     Dosage: 10 MG, BID
     Route: 065
     Dates: start: 20150521
  9. QUASYM L.P. [Suspect]
     Active Substance: METHYLPHENIDATE HYDROCHLORIDE
     Indication: ATTENTION DEFICIT/HYPERACTIVITY DISORDER
     Dosage: 20 MG, QD (IN THE MORNING)
     Route: 065
     Dates: start: 20150305
  10. MELATONIN [Concomitant]
     Active Substance: MELATONIN
     Dosage: 1 G, QD
     Route: 065
     Dates: start: 20160622
  11. MELATONIN [Concomitant]
     Active Substance: MELATONIN
     Dosage: 1 G, QD
     Route: 065
     Dates: start: 20160713
  12. MELATONIN [Concomitant]
     Active Substance: MELATONIN
     Dosage: 1 G, QD
     Route: 065
     Dates: start: 20161212
  13. RITALIN [Suspect]
     Active Substance: METHYLPHENIDATE HYDROCHLORIDE
     Dosage: 10 MG, BID
     Route: 065
     Dates: start: 20160125
  14. MELATONIN [Concomitant]
     Active Substance: MELATONIN
     Dosage: 1 G, QD
     Route: 065
     Dates: start: 20160829
  15. MELATONIN [Concomitant]
     Active Substance: MELATONIN
     Dosage: 1 G, QD
     Route: 065
     Dates: start: 20161109
  16. RITALIN [Suspect]
     Active Substance: METHYLPHENIDATE HYDROCHLORIDE
     Dosage: 0.5 DF, BID (HALF TABLET OF 10 MG IN MORNING AND AT NOON)
     Route: 065
  17. RITALIN [Suspect]
     Active Substance: METHYLPHENIDATE HYDROCHLORIDE
     Dosage: 10 MG, BID
     Route: 065
     Dates: start: 20150205
  18. RITALIN [Suspect]
     Active Substance: METHYLPHENIDATE HYDROCHLORIDE
     Dosage: 10 MG, BID
     Route: 065
     Dates: start: 20150408
  19. RITALIN [Suspect]
     Active Substance: METHYLPHENIDATE HYDROCHLORIDE
     Dosage: 10 MG, BID
     Route: 065
     Dates: start: 20150618
  20. RITALIN [Suspect]
     Active Substance: METHYLPHENIDATE HYDROCHLORIDE
     Dosage: 10 MG, BID
     Route: 065
     Dates: start: 20150703, end: 201508
  21. RITALIN [Suspect]
     Active Substance: METHYLPHENIDATE HYDROCHLORIDE
     Dosage: 10 MG, BID
     Route: 065
     Dates: start: 20160418
  22. RITALIN [Suspect]
     Active Substance: METHYLPHENIDATE HYDROCHLORIDE
     Dosage: 10 MG, BID
     Route: 065
     Dates: start: 20160829
  23. QUASYM L.P. [Suspect]
     Active Substance: METHYLPHENIDATE HYDROCHLORIDE
     Dosage: 20 MG EVERY WEDNESDAY
     Route: 065
     Dates: start: 20150408, end: 201505

REACTIONS (7)
  - Anger [Unknown]
  - Decreased appetite [Unknown]
  - Chest pain [Unknown]
  - Tourette^s disorder [Unknown]
  - Epistaxis [Unknown]
  - Insomnia [Unknown]
  - Drug ineffective [Unknown]

NARRATIVE: CASE EVENT DATE: 20150112
